FAERS Safety Report 19057229 (Version 1)
Quarter: 2021Q1

REPORT INFORMATION
  Report Type: Spontaneous
  Country: US (occurrence: US)
  Receive Date: 20210325
  Receipt Date: 20210325
  Transmission Date: 20210420
  Serious: Yes (Death)
  Sender: FDA-Public Use
  Company Number: None

PATIENT
  Age: 63 Year
  Sex: Male

DRUGS (1)
  1. ZIEXTENZO [Suspect]
     Active Substance: PEGFILGRASTIM-BMEZ
     Indication: SOFT TISSUE SARCOMA
     Dosage: ?          OTHER FREQUENCY:ONCE AFTER CHEMO;?
     Route: 058
     Dates: start: 20210303, end: 20210305

REACTIONS (1)
  - Death [None]

NARRATIVE: CASE EVENT DATE: 20210305
